FAERS Safety Report 6520979-1 (Version None)
Quarter: 2009Q4

REPORT INFORMATION
  Report Type: 
  Country: None (occurrence: None)
  Receive Date: 20091229
  Receipt Date: 20091218
  Transmission Date: 20100525
  Serious: Yes (Other)
  Sender: FDA-Public Use
  Company Number: SG-PFIZER INC-2009312886

PATIENT
  Age: 75 Year
  Sex: Male

DRUGS (1)
  1. AMPICILLIN SODIUM/SULBACTAM SODIUM [Suspect]

REACTIONS (1)
  - HAEMOLYTIC ANAEMIA [None]
